FAERS Safety Report 5260860-1 (Version None)
Quarter: 2007Q1

REPORT INFORMATION
  Report Type: 
  Country: None (occurrence: None)
  Receive Date: 20070309
  Receipt Date: 20070228
  Transmission Date: 20070707
  Serious: Yes (Death)
  Sender: FDA-Public Use
  Company Number: IE-GLAXOSMITHKLINE-B0461297A

PATIENT
  Sex: Female

DRUGS (1)
  1. PANADOL [Suspect]
     Route: 065

REACTIONS (2)
  - DEATH [None]
  - OVERDOSE [None]
